FAERS Safety Report 10763886 (Version 1)
Quarter: 2015Q1

REPORT INFORMATION
  Report Type: Report from Study
  Country: US (occurrence: US)
  Receive Date: 20150204
  Receipt Date: 20150204
  Transmission Date: 20150721
  Serious: Yes (Hospitalization, Disabling, Other)
  Sender: FDA-Public Use
  Company Number: US-GILEAD-2015-0134829

PATIENT
  Age: 49 Year
  Sex: Female

DRUGS (1)
  1. EMTRICITABINE/TENOFOVIR DISOPROXIL FUMARATE [Suspect]
     Active Substance: EMTRICITABINE\TENOFOVIR DISOPROXIL
     Indication: ACQUIRED IMMUNODEFICIENCY SYNDROME
     Dosage: 500 MG, UNK
     Route: 048

REACTIONS (5)
  - Diabetic coma [Unknown]
  - Cerebrovascular accident [Unknown]
  - Weight increased [Unknown]
  - Toxoplasmosis [Unknown]
  - Hypertension [Unknown]

NARRATIVE: CASE EVENT DATE: 20131218
